FAERS Safety Report 15955622 (Version 2)
Quarter: 2021Q3

REPORT INFORMATION
  Report Type: Spontaneous
  Country: US (occurrence: US)
  Receive Date: 20190213
  Receipt Date: 20210805
  Transmission Date: 20211014
  Serious: Yes (Death, Other)
  Sender: FDA-Public Use
  Company Number: PHEH2019US006535

PATIENT
  Age: 8 Year
  Sex: Female

DRUGS (1)
  1. KYMRIAH [Suspect]
     Active Substance: TISAGENLECLEUCEL
     Indication: B-CELL TYPE ACUTE LEUKAEMIA
     Dosage: 0.2 KG, ONCE/SINGLE
     Route: 065
     Dates: start: 20180201

REACTIONS (2)
  - Respiratory distress [Unknown]
  - Death [Fatal]
